FAERS Safety Report 6581508-X (Version None)
Quarter: 2010Q1

REPORT INFORMATION
  Report Type: 
  Country: None (occurrence: None)
  Receive Date: 20100215
  Receipt Date: 20100208
  Transmission Date: 20100710
  Serious: Yes (Other)
  Sender: FDA-Public Use
  Company Number: B0633450A

PATIENT
  Age: 77 Year
  Sex: Female

DRUGS (10)
  1. AVANDIA [Suspect]
     Dosage: 4MG PER DAY
     Route: 048
     Dates: start: 20080701, end: 20091215
  2. ENALAPRIL MALEATE [Concomitant]
     Route: 065
  3. EMCONCOR [Concomitant]
     Route: 065
  4. METFORMIN HCL [Concomitant]
     Route: 065
  5. EUTIROX [Concomitant]
     Route: 065
  6. SIMVASTATIN [Concomitant]
     Route: 065
  7. TROMALYT [Concomitant]
     Route: 065
  8. NEXIUM [Concomitant]
     Route: 065
  9. FLURAZEPAM [Concomitant]
     Route: 065
  10. FUROSEMIDE [Concomitant]
     Route: 065

REACTIONS (3)
  - DYSPNOEA [None]
  - OEDEMA PERIPHERAL [None]
  - PULMONARY OEDEMA [None]
